FAERS Safety Report 7746764-0 (Version None)
Quarter: 2011Q3

REPORT INFORMATION
  Report Type: 
  Country: None (occurrence: None)
  Receive Date: 20110913
  Receipt Date: 20110909
  Transmission Date: 20111222
  Serious: Yes (Death, Hospitalization, Other)
  Sender: FDA-Public Use
  Company Number: GB-B.I. PHARMACEUTICALS,INC./RIDGEFIELD-2011-UK-00965UK

PATIENT
  Age: 63 Year
  Sex: Female

DRUGS (12)
  1. LAMOTRIGINE [Concomitant]
  2. MARAVIROC [Concomitant]
  3. METFORMIN HCL [Concomitant]
  4. VIRAMUNE [Suspect]
     Indication: HIV INFECTION
     Dates: start: 20051201
  5. PRAVASTATIN [Concomitant]
  6. REYATAZ [Suspect]
     Indication: HIV INFECTION
  7. RITONAVIR [Suspect]
     Indication: HIV INFECTION
  8. RALTEGRAVIR POTASSIUM [Concomitant]
  9. COMBIVIR [Suspect]
     Indication: HIV INFECTION
     Dates: start: 20051201
  10. ASPIRIN [Concomitant]
  11. CALCIUM CARBONATE [Concomitant]
  12. FERROUS SULFATE TAB [Concomitant]

REACTIONS (1)
  - HEPATIC STEATOSIS [None]
